FAERS Safety Report 11498671 (Version 4)
Quarter: 2015Q4

REPORT INFORMATION
  Report Type: Spontaneous
  Country: AU (occurrence: AU)
  Receive Date: 20150912
  Receipt Date: 20151104
  Transmission Date: 20160304
  Serious: Yes (Hospitalization, Other)
  Sender: FDA-Public Use
  Company Number: AU-AMGEN-AUSSP2015092049

PATIENT
  Age: 45 Year
  Sex: Female
  Weight: 58 kg

DRUGS (7)
  1. ARANESP [Suspect]
     Active Substance: DARBEPOETIN ALFA
     Indication: ANAEMIA
     Dosage: 60 UNK, Q2WK
     Route: 058
     Dates: start: 20140116
  2. PREDNISOLONE. [Concomitant]
     Active Substance: PREDNISOLONE
     Indication: TRANSPLANT
     Dosage: 5 MG, QD
     Route: 048
     Dates: start: 2008
  3. TACROLIMUS. [Concomitant]
     Active Substance: TACROLIMUS
     Indication: TRANSPLANT
     Dosage: 2 MG, BID
     Route: 048
     Dates: start: 2008
  4. CYCLOPHOSPHAMIDE. [Concomitant]
     Active Substance: CYCLOPHOSPHAMIDE
  5. PLAQUENIL [Suspect]
     Active Substance: HYDROXYCHLOROQUINE SULFATE
     Indication: SYSTEMIC LUPUS ERYTHEMATOSUS
     Dosage: 200 MG, QD
     Route: 048
     Dates: start: 20131111, end: 20150720
  6. MYFORTIC [Concomitant]
     Active Substance: MYCOPHENOLATE SODIUM
     Indication: TRANSPLANT
     Dosage: 360 MG, BID
     Route: 048
     Dates: start: 2008
  7. FUROSEMIDE. [Concomitant]
     Active Substance: FUROSEMIDE
     Indication: PULMONARY HYPERTENSION
     Dosage: 20 MG, QD
     Route: 048
     Dates: start: 2014

REACTIONS (10)
  - Aplasia pure red cell [Unknown]
  - Fatigue [Not Recovered/Not Resolved]
  - Pleural effusion [Unknown]
  - Renal cyst [Unknown]
  - Myelodysplastic syndrome [Unknown]
  - Weight decreased [Unknown]
  - Night sweats [Unknown]
  - Anaemia [Not Recovered/Not Resolved]
  - Drug effect decreased [Unknown]
  - Thyroid neoplasm [Unknown]

NARRATIVE: CASE EVENT DATE: 20150720
